FAERS Safety Report 24080768 (Version 5)
Quarter: 2025Q2

REPORT INFORMATION
  Report Type: Report from Study
  Country: MX (occurrence: MX)
  Receive Date: 20240711
  Receipt Date: 20250530
  Transmission Date: 20250716
  Serious: Yes (Other)
  Sender: ALEXION PHARMACEUTICALS
  Company Number: 2023A097403

PATIENT
  Age: 89 Year
  Weight: 63 kg

DRUGS (6)
  1. OSIMERTINIB [Suspect]
     Active Substance: OSIMERTINIB
     Indication: Small cell lung cancer
     Dosage: 1 DOSAGE FORM, QD
  2. OSIMERTINIB [Suspect]
     Active Substance: OSIMERTINIB
  3. PROBIOTICS NOS [Concomitant]
     Active Substance: PROBIOTICS NOS
     Indication: Irritable bowel syndrome
     Dosage: UNK, QD
  4. URSODIOL [Concomitant]
     Active Substance: URSODIOL
     Indication: Hepatic cirrhosis
     Dosage: 2 DOSAGE FORM, QD
  5. Enterex hepatic [Concomitant]
     Indication: Hepatic cirrhosis
     Dosage: 60 MILLILITER, UNK
  6. AMINO ACIDS, SOURCE UNSPECIFIED [Concomitant]
     Active Substance: AMINO ACIDS, SOURCE UNSPECIFIED
     Indication: Hepatic cirrhosis
     Dosage: 0.5 DOSAGE FORM, QD
     Route: 065

REACTIONS (28)
  - Diarrhoea [Recovering/Resolving]
  - Renal injury [Recovering/Resolving]
  - Carcinoembryonic antigen increased [Not Recovered/Not Resolved]
  - Vertebral lesion [Not Recovered/Not Resolved]
  - Contusion [Not Recovered/Not Resolved]
  - Erythema [Recovered/Resolved]
  - Peripheral swelling [Recovered/Resolved]
  - Gastrointestinal sounds abnormal [Recovering/Resolving]
  - Pruritus [Recovering/Resolving]
  - Platelet count decreased [Not Recovered/Not Resolved]
  - Decreased appetite [Not Recovered/Not Resolved]
  - Weight increased [Recovered/Resolved]
  - Body height decreased [Recovered/Resolved]
  - Dry mouth [Not Recovered/Not Resolved]
  - Taste disorder [Not Recovered/Not Resolved]
  - Hyperchlorhydria [Not Recovered/Not Resolved]
  - Dyspepsia [Not Recovered/Not Resolved]
  - Fatigue [Not Recovered/Not Resolved]
  - Constipation [Recovering/Resolving]
  - Blood triglycerides increased [Not Recovered/Not Resolved]
  - Burning sensation [Not Recovered/Not Resolved]
  - Influenza [Recovered/Resolved]
  - Product use issue [Recovered/Resolved]
  - Neoplasm [Not Recovered/Not Resolved]
  - Off label use [Unknown]
  - Platelet count decreased [Not Recovered/Not Resolved]
  - Mass [Unknown]
  - Positron emission tomogram abnormal [Unknown]
